FAERS Safety Report 5320818-0 (Version None)
Quarter: 2007Q2

REPORT INFORMATION
  Report Type: 
  Country: None (occurrence: None)
  Receive Date: 20070502
  Receipt Date: 20070420
  Transmission Date: 20071010
  Serious: Yes (Hospitalization, Other)
  Sender: FDA-Public Use
  Company Number: 2005-01411

PATIENT
  Age: 63 Year
  Sex: Male
  Weight: 77.1 kg

DRUGS (6)
  1. VELCADE [Suspect]
     Indication: MULTIPLE MYELOMA
     Dosage: SEE IMAGE
     Route: 040
     Dates: start: 20050606, end: 20050616
  2. VELCADE [Suspect]
     Indication: MULTIPLE MYELOMA
     Dosage: SEE IMAGE
     Route: 040
     Dates: start: 20050628, end: 20050628
  3. ASPIRIN [Concomitant]
  4. VITAMIN B6 [Concomitant]
  5. ESCITALOPRAM 9ESCITALOPRAM) [Concomitant]
  6. IUPROFEN (IBUPROFEN) [Concomitant]

REACTIONS (11)
  - ANAEMIA [None]
  - BAND NEUTROPHIL PERCENTAGE INCREASED [None]
  - BONE MARROW FAILURE [None]
  - GALLBLADDER DISORDER [None]
  - HYPOKALAEMIA [None]
  - HYPONATRAEMIA [None]
  - ILEUS [None]
  - MALIGNANT HYPERTENSION [None]
  - PANCREATITIS ACUTE [None]
  - RENAL FAILURE [None]
  - THROMBOCYTOPENIA [None]
